FAERS Safety Report 10470990 (Version 4)
Quarter: 2014Q4

REPORT INFORMATION
  Report Type: Spontaneous
  Country: US (occurrence: US)
  Receive Date: 20140923
  Receipt Date: 20141209
  Transmission Date: 20150528
  Serious: Yes (Life-Threatening, Hospitalization, Other)
  Sender: FDA-Public Use
  Company Number: US-MERCK-1409USA010622

PATIENT
  Sex: Male
  Weight: 92.97 kg

DRUGS (1)
  1. JANUVIA [Suspect]
     Active Substance: SITAGLIPTIN PHOSPHATE
     Indication: TYPE 2 DIABETES MELLITUS
     Dosage: 100 MG, QD
     Route: 048
     Dates: start: 20110320

REACTIONS (23)
  - Splenectomy [Unknown]
  - Pancreatectomy [Unknown]
  - Metastases to lymph nodes [Unknown]
  - Pancreatic leak [Unknown]
  - Electrocardiogram abnormal [Unknown]
  - Pleuritic pain [Unknown]
  - Impaired healing [Unknown]
  - Dry skin [Unknown]
  - Sexual dysfunction [Unknown]
  - Peripheral coldness [Unknown]
  - Abscess drainage [Unknown]
  - Back pain [Unknown]
  - Biopsy liver [Unknown]
  - Debridement [Unknown]
  - Sinus disorder [Unknown]
  - Adrenalectomy [Unknown]
  - Granuloma [Unknown]
  - Pancreatic carcinoma metastatic [Unknown]
  - Cardiac failure congestive [Unknown]
  - Debridement [Unknown]
  - Bladder cancer [Unknown]
  - Renal failure [Unknown]
  - Gout [Unknown]

NARRATIVE: CASE EVENT DATE: 2012
